FAERS Safety Report 6081486-6 (Version None)
Quarter: 2009Q1

REPORT INFORMATION
  Report Type: 
  Country: None (occurrence: None)
  Receive Date: 20090213
  Receipt Date: 20090205
  Transmission Date: 20090719
  Serious: Yes (Death, Other)
  Sender: FDA-Public Use
  Company Number: 2009US000287

PATIENT
  Age: 35 Year
  Sex: Female

DRUGS (4)
  1. PROGRAF [Suspect]
     Indication: LUNG TRANSPLANT
  2. AZATHIOPRINE [Concomitant]
  3. VALGANCICLOVIR HCL [Concomitant]
  4. TRIMETHOPRIM + SULFAMETHOXAZOLE [Concomitant]

REACTIONS (14)
  - APLASTIC ANAEMIA [None]
  - BONE MARROW FAILURE [None]
  - CONVULSION [None]
  - DIARRHOEA [None]
  - DRUG INEFFECTIVE [None]
  - GRAFT VERSUS HOST DISEASE [None]
  - HEPATOSPLENIC CANDIDIASIS [None]
  - INFECTION [None]
  - NAUSEA [None]
  - ORAL CANDIDIASIS [None]
  - RASH MACULO-PAPULAR [None]
  - SEPSIS [None]
  - STAPHYLOCOCCAL BACTERAEMIA [None]
  - VOMITING [None]
